FAERS Safety Report 5945414-3 (Version None)
Quarter: 2008Q4

REPORT INFORMATION
  Report Type: 
  Country: None (occurrence: None)
  Receive Date: 20081107
  Receipt Date: 20081027
  Transmission Date: 20090506
  Serious: Yes (Hospitalization)
  Sender: FDA-Public Use
  Company Number: FR-PFIZER INC-2008079319

PATIENT
  Sex: Male
  Weight: 88 kg

DRUGS (6)
  1. LYRICA [Suspect]
     Indication: POLYNEUROPATHY
     Route: 048
     Dates: start: 20080610, end: 20080909
  2. SOTALOL HCL [Concomitant]
     Route: 048
     Dates: start: 20060101
  3. PLAVIX [Concomitant]
     Route: 048
     Dates: start: 20060101
  4. GLUCOPHAGE [Concomitant]
     Route: 048
     Dates: start: 20060101
  5. EZETROL [Concomitant]
     Route: 048
     Dates: start: 20060101
  6. QUESTRAN [Concomitant]
     Route: 048
     Dates: start: 20060101

REACTIONS (3)
  - DERMATITIS [None]
  - TOXIC SKIN ERUPTION [None]
  - VASCULITIS NECROTISING [None]
